FAERS Safety Report 15103578 (Version 1)
Quarter: 2018Q2

REPORT INFORMATION
  Report Type: Spontaneous
  Country: US (occurrence: US)
  Receive Date: 20180611
  Receipt Date: 20180611
  Transmission Date: 20180711
  Serious: Yes (Other)
  Sender: FDA-Public Use
  Company Number: None

PATIENT
  Age: 51 Year
  Sex: Female
  Weight: 80.1 kg

DRUGS (2)
  1. GAMMAKED [Suspect]
     Active Substance: HUMAN IMMUNOGLOBULIN G
     Indication: NEUROPATHY PERIPHERAL
     Dosage: ?          OTHER FREQUENCY:5 DAYS Q4WEEKS;?
     Route: 042
     Dates: start: 20180521, end: 20180522
  2. GAMMAKED [Suspect]
     Active Substance: HUMAN IMMUNOGLOBULIN G
     Indication: NEUROPATHY PERIPHERAL
     Dosage: ?          OTHER FREQUENCY:5 DAYS Q4WEEKS;?
     Route: 042
     Dates: start: 20180521, end: 20180522

REACTIONS (2)
  - Hypersensitivity [None]
  - Rash erythematous [None]

NARRATIVE: CASE EVENT DATE: 20180521
